FAERS Safety Report 25083460 (Version 1)
Quarter: 2025Q1

REPORT INFORMATION
  Report Type: Spontaneous
  Country: US (occurrence: US)
  Receive Date: 20250317
  Receipt Date: 20250317
  Transmission Date: 20250409
  Serious: Yes (Hospitalization)
  Sender: MYLAN
  Company Number: US-MYLANLABS-2025M1020772

PATIENT
  Age: 24 Year
  Sex: Female

DRUGS (16)
  1. APIXABAN [Suspect]
     Active Substance: APIXABAN
     Indication: Pulmonary embolism
  2. APIXABAN [Suspect]
     Active Substance: APIXABAN
     Route: 065
  3. APIXABAN [Suspect]
     Active Substance: APIXABAN
     Route: 065
  4. APIXABAN [Suspect]
     Active Substance: APIXABAN
  5. COLCHICINE [Suspect]
     Active Substance: COLCHICINE
     Indication: Pain
  6. COLCHICINE [Suspect]
     Active Substance: COLCHICINE
     Indication: Myocarditis
     Route: 065
  7. COLCHICINE [Suspect]
     Active Substance: COLCHICINE
     Route: 065
  8. COLCHICINE [Suspect]
     Active Substance: COLCHICINE
  9. MILRINONE [Suspect]
     Active Substance: MILRINONE
     Indication: Cardiogenic shock
  10. MILRINONE [Suspect]
     Active Substance: MILRINONE
     Indication: Myocarditis
     Route: 065
  11. MILRINONE [Suspect]
     Active Substance: MILRINONE
     Route: 065
  12. MILRINONE [Suspect]
     Active Substance: MILRINONE
  13. DOBUTAMINE [Suspect]
     Active Substance: DOBUTAMINE HYDROCHLORIDE
     Indication: Cardiogenic shock
  14. DOBUTAMINE [Suspect]
     Active Substance: DOBUTAMINE HYDROCHLORIDE
     Indication: Myocarditis
     Route: 065
  15. DOBUTAMINE [Suspect]
     Active Substance: DOBUTAMINE HYDROCHLORIDE
     Route: 065
  16. DOBUTAMINE [Suspect]
     Active Substance: DOBUTAMINE HYDROCHLORIDE

REACTIONS (2)
  - Drug ineffective [Unknown]
  - Off label use [Unknown]
